FAERS Safety Report 5406161-X (Version None)
Quarter: 2007Q3

REPORT INFORMATION
  Report Type: 
  Country: None (occurrence: None)
  Receive Date: 20070802
  Receipt Date: 20070802
  Transmission Date: 20080115
  Serious: No
  Sender: FDA-Public Use
  Company Number: None

PATIENT
  Sex: Female
  Weight: 28.123 kg

DRUGS (2)
  1. PROAIR HFA [Suspect]
     Indication: ASTHMA
     Dosage: TWO PUFFS EVERY FOUR HOURS
     Dates: start: 20070625, end: 20070626
  2. PROAIR HFA [Suspect]
     Indication: NASOPHARYNGITIS
     Dosage: TWO PUFFS EVERY FOUR HOURS
     Dates: start: 20070625, end: 20070626

REACTIONS (2)
  - NAUSEA [None]
  - VOMITING [None]
